FAERS Safety Report 22715887 (Version 2)
Quarter: 2024Q2

REPORT INFORMATION
  Report Type: Spontaneous
  Country: US (occurrence: US)
  Receive Date: 20230718
  Receipt Date: 20240524
  Transmission Date: 20240716
  Serious: Yes (Other)
  Sender: FDA-Public Use
  Company Number: US-ROCHE-2824677

PATIENT
  Age: 62 Year
  Sex: Female
  Weight: 49.939 kg

DRUGS (16)
  1. CLONAZEPAM [Suspect]
     Active Substance: CLONAZEPAM
     Indication: Primary progressive multiple sclerosis
     Dosage: 0.25 TO 0.5 MG PER DAY
     Route: 048
     Dates: start: 2010
  2. CLONAZEPAM [Suspect]
     Active Substance: CLONAZEPAM
     Indication: Primary progressive multiple sclerosis
     Route: 048
     Dates: start: 201606
  3. CLONAZEPAM [Suspect]
     Active Substance: CLONAZEPAM
     Indication: Primary progressive multiple sclerosis
     Route: 048
     Dates: start: 202103
  4. CLONAZEPAM [Suspect]
     Active Substance: CLONAZEPAM
     Indication: Primary progressive multiple sclerosis
     Route: 048
  5. OCREVUS [Suspect]
     Active Substance: OCRELIZUMAB
     Indication: Primary progressive multiple sclerosis
     Route: 042
     Dates: start: 201705
  6. OCREVUS [Suspect]
     Active Substance: OCRELIZUMAB
     Indication: Primary progressive multiple sclerosis
     Dosage: 4-5 HOUR TREATMENT
     Route: 042
     Dates: start: 201805, end: 202011
  7. OCREVUS [Suspect]
     Active Substance: OCRELIZUMAB
     Indication: Primary progressive multiple sclerosis
     Dosage: 300 MG ON DAY 1 AND DAY 15 THEN 600 MG EVERY 6 MONTHS
     Route: 042
     Dates: start: 20181001
  8. OCREVUS [Suspect]
     Active Substance: OCRELIZUMAB
     Indication: Primary progressive multiple sclerosis
     Dosage: DATE OF TREATMENT: 12/NOV/2019, 14/MAY/2020, 16/NOV/2020.
     Route: 042
     Dates: start: 20190501
  9. OCREVUS [Suspect]
     Active Substance: OCRELIZUMAB
     Indication: Primary progressive multiple sclerosis
     Route: 042
     Dates: start: 20230731
  10. LAMOTRIGINE [Concomitant]
     Active Substance: LAMOTRIGINE
     Indication: Primary progressive multiple sclerosis
     Dosage: DOSAGE FORM: PILLS?DAILY DOSE: 200 MILLIGRAM
     Route: 048
  11. GABAPENTIN [Concomitant]
     Active Substance: GABAPENTIN
     Indication: Primary progressive multiple sclerosis
     Dosage: DAILY DOSE: 1200 MILLIGRAM
     Route: 048
     Dates: start: 2010
  12. GABAPENTIN [Concomitant]
     Active Substance: GABAPENTIN
     Indication: Pain
     Dosage: DAILY DOSE: 1200 MILLIGRAM
     Route: 048
     Dates: start: 2010
  13. LAMICTAL [Concomitant]
     Active Substance: LAMOTRIGINE
  14. ESCITALOPRAM [Concomitant]
     Active Substance: ESCITALOPRAM OXALATE
  15. OMEPRAZOLE [Concomitant]
     Active Substance: DONEPEZIL HYDROCHLORIDE\OMEPRAZOLE\OMEPRAZOLE MAGNESIUM
  16. LEVOTHYROXINE [Concomitant]
     Active Substance: LEVOTHYROXINE\LEVOTHYROXINE SODIUM

REACTIONS (17)
  - Multiple sclerosis [Unknown]
  - Seizure [Not Recovered/Not Resolved]
  - Insomnia [Not Recovered/Not Resolved]
  - Pain in jaw [Recovered/Resolved]
  - Dizziness [Unknown]
  - Anxiety [Unknown]
  - Stress [Unknown]
  - Hypersomnia [Unknown]
  - Arthralgia [Unknown]
  - Balance disorder [Unknown]
  - Headache [Unknown]
  - Fatigue [Not Recovered/Not Resolved]
  - Pain [Not Recovered/Not Resolved]
  - Fall [Unknown]
  - Gait disturbance [Unknown]
  - Product use in unapproved indication [Not Recovered/Not Resolved]
  - Hyperthyroidism [Unknown]

NARRATIVE: CASE EVENT DATE: 20100101
